FAERS Safety Report 8821766 (Version 1)
Quarter: 2012Q4

REPORT INFORMATION
  Report Type: 
  Country: US (occurrence: US)
  Receive Date: 20121002
  Receipt Date: 20121002
  Transmission Date: 20130627
  Serious: Yes (Other)
  Sender: FDA-Public Use
  Company Number: US-009507513-1210USA000485

PATIENT
  Age: 50 Year
  Sex: Male

DRUGS (10)
  1. JANUMET [Suspect]
     Route: 048
  2. ZOCOR [Suspect]
     Route: 048
  3. PRINIVIL [Suspect]
  4. TRICOR [Suspect]
  5. BENZTROPINE MESYLATE [Suspect]
  6. CLONAZEPAM [Suspect]
  7. ATENOLOL [Suspect]
  8. ASPIRIN [Suspect]
  9. RISPERIDONE [Suspect]
  10. IRON DEXTRAN [Suspect]

REACTIONS (1)
  - Renal failure acute [Unknown]
